FAERS Safety Report 13944865 (Version 1)
Quarter: 2017Q3

REPORT INFORMATION
  Report Type: Spontaneous
  Country: US (occurrence: US)
  Receive Date: 20170907
  Receipt Date: 20170907
  Transmission Date: 20171128
  Serious: No
  Sender: FDA-Public Use
  Company Number: US-ROCHE-1267473

PATIENT
  Sex: Female
  Weight: 118.1 kg

DRUGS (23)
  1. ASA [Concomitant]
     Active Substance: ASPIRIN
     Dosage: 81
     Route: 065
  2. ZOCOR [Concomitant]
     Active Substance: SIMVASTATIN
  3. EPOGEN [Concomitant]
     Active Substance: ERYTHROPOIETIN
  4. AMBIEN [Concomitant]
     Active Substance: ZOLPIDEM TARTRATE
  5. RITUXAN [Suspect]
     Active Substance: RITUXIMAB
     Indication: COLD TYPE HAEMOLYTIC ANAEMIA
  6. LASIX [Concomitant]
     Active Substance: FUROSEMIDE
  7. PROTONIX [Concomitant]
     Active Substance: PANTOPRAZOLE SODIUM
  8. RENAGEL [Concomitant]
     Active Substance: SEVELAMER HYDROCHLORIDE
  9. PARICALCITOL. [Concomitant]
     Active Substance: PARICALCITOL
  10. SENSIPAR [Concomitant]
     Active Substance: CINACALCET HYDROCHLORIDE
  11. ALLOPURINOL. [Concomitant]
     Active Substance: ALLOPURINOL
     Route: 065
  12. NOVOLOG [Concomitant]
     Active Substance: INSULIN ASPART
  13. NEPHRO-VITE [Concomitant]
  14. FLEXEN [Concomitant]
  15. RITUXAN [Suspect]
     Active Substance: RITUXIMAB
     Indication: OFF LABEL USE
  16. NEURONTIN [Concomitant]
     Active Substance: GABAPENTIN
  17. ESTRADIOL. [Concomitant]
     Active Substance: ESTRADIOL
  18. COLACE [Concomitant]
     Active Substance: DOCUSATE SODIUM
  19. TYLENOL WITH CODEINE [Concomitant]
     Active Substance: ACETAMINOPHEN\CODEINE PHOSPHATE
  20. COREG [Concomitant]
     Active Substance: CARVEDILOL
  21. LEXAPRO [Concomitant]
     Active Substance: ESCITALOPRAM OXALATE
  22. RITUXAN [Suspect]
     Active Substance: RITUXIMAB
     Indication: AUTOIMMUNE HAEMOLYTIC ANAEMIA
     Route: 042
     Dates: start: 20121101, end: 20121121
  23. ASACOL [Concomitant]
     Active Substance: MESALAMINE

REACTIONS (1)
  - Autoimmune haemolytic anaemia [Unknown]
